FAERS Safety Report 8560317-6 (Version None)
Quarter: 2012Q3

REPORT INFORMATION
  Report Type: 
  Country: None (occurrence: None)
  Receive Date: 20120802
  Receipt Date: 20120719
  Transmission Date: 20120928
  Serious: Yes (Other)
  Sender: FDA-Public Use
  Company Number: FR-ELI_LILLY_AND_COMPANY-FR201204009959

PATIENT

DRUGS (2)
  1. ZYPREXA [Suspect]
     Route: 064
  2. ZYPREXA [Suspect]
     Route: 064

REACTIONS (5)
  - UMBILICAL CORD AROUND NECK [None]
  - FOETAL EXPOSURE DURING PREGNANCY [None]
  - CYTOGENETIC ABNORMALITY [None]
  - DEVELOPMENTAL DELAY [None]
  - AUTISM [None]
